FAERS Safety Report 8356043-9 (Version None)
Quarter: 2012Q2

REPORT INFORMATION
  Report Type: 
  Country: None (occurrence: None)
  Receive Date: 20120511
  Receipt Date: 20120511
  Transmission Date: 20120825
  Serious: Yes (Other)
  Sender: FDA-Public Use
  Company Number: None

PATIENT
  Age: 55 Year
  Weight: 127.0072 kg

DRUGS (2)
  1. VENLAFAXINE [Suspect]
     Indication: ANXIETY
     Dosage: 225 MGS ONCE A DAY PO
     Route: 048
     Dates: start: 20120507, end: 20120507
  2. VENLAFAXINE [Suspect]
     Indication: MAJOR DEPRESSION
     Dosage: 225 MGS ONCE A DAY PO
     Route: 048
     Dates: start: 20120507, end: 20120507

REACTIONS (5)
  - TACHYCARDIA [None]
  - BLOOD PRESSURE INCREASED [None]
  - PRODUCT SUBSTITUTION ISSUE [None]
  - VERTIGO [None]
  - NAUSEA [None]
